FAERS Safety Report 4892707-7 (Version None)
Quarter: 2006Q1

REPORT INFORMATION
  Report Type: 
  Country: None (occurrence: None)
  Receive Date: 20060125
  Receipt Date: 20060125
  Transmission Date: 20060701
  Serious: Yes (Hospitalization)
  Sender: FDA-Public Use
  Company Number: None

PATIENT
  Sex: Female

DRUGS (10)
  1. PHENYTOIN [Suspect]
     Indication: CONVULSION
     Dosage: 300/200, AM/PM, ORAL
     Route: 048
     Dates: start: 20050827, end: 20050913
  2. ASPIRIN [Concomitant]
  3. MOM [Concomitant]
  4. RISPERIDONE [Concomitant]
  5. KEPPRA [Concomitant]
  6. PANTOPRAZOLE [Concomitant]
  7. LANTUS [Concomitant]
  8. REGULAR INSULIN [Concomitant]
  9. ATIVAN [Concomitant]
  10. KLONOPIN [Concomitant]

REACTIONS (3)
  - DYSPNOEA [None]
  - FATIGUE [None]
  - HAEMOGLOBIN DECREASED [None]
